FAERS Safety Report 6482928-4 (Version None)
Quarter: 2009Q4

REPORT INFORMATION
  Report Type: 
  Country: None (occurrence: None)
  Receive Date: 20091203
  Receipt Date: 20091119
  Transmission Date: 20100525
  Serious: Yes (Life-Threatening, Other)
  Sender: FDA-Public Use
  Company Number: ADR51512009

PATIENT
  Age: 24 Year
  Sex: Male

DRUGS (2)
  1. CITALOPRAM (MFR: UNKNOWN) [Suspect]
     Indication: ANXIETY
     Dosage: 20 MG ORAL
     Route: 048
     Dates: start: 20070101, end: 20070301
  2. SEROQUEL [Concomitant]

REACTIONS (2)
  - ERECTILE DYSFUNCTION [None]
  - SUICIDE ATTEMPT [None]
